FAERS Safety Report 18933194 (Version 1)
Quarter: 2021Q1

REPORT INFORMATION
  Report Type: Spontaneous
  Country: US (occurrence: US)
  Receive Date: 20210224
  Receipt Date: 20210224
  Transmission Date: 20210420
  Serious: No
  Sender: FDA-Public Use
  Company Number: US-LANTHEUS-LMI-2020-00278

PATIENT
  Age: 92 Year
  Sex: Male
  Weight: 84 kg

DRUGS (1)
  1. DEFINITY [Suspect]
     Active Substance: PERFLUTREN
     Indication: ECHOCARDIOGRAM
     Dosage: 3 MILLILITER, (1.3 ML DEFINITY PREPARED IN 8.7 ML NORMAL SALINE)
     Route: 040
     Dates: start: 20200604, end: 20200604

REACTIONS (3)
  - Chest pain [Recovered/Resolved]
  - Groin pain [Recovered/Resolved]
  - Back pain [Recovered/Resolved]

NARRATIVE: CASE EVENT DATE: 20200604
